FAERS Safety Report 24737621 (Version 1)
Quarter: 2024Q4

REPORT INFORMATION
  Report Type: Spontaneous
  Country: IT (occurrence: IT)
  Receive Date: 20241216
  Receipt Date: 20241216
  Transmission Date: 20250114
  Serious: Yes (Other)
  Sender: JOHNSON AND JOHNSON
  Company Number: None

PATIENT
  Weight: 56 kg

DRUGS (6)
  1. SIMPONI [Suspect]
     Active Substance: GOLIMUMAB
     Indication: Spondylitis
     Dosage: 50 MG OGNI 4 SETTIMANE
     Route: 058
     Dates: start: 201601, end: 20190130
  2. SIMPONI [Suspect]
     Active Substance: GOLIMUMAB
     Indication: Psoriatic arthropathy
  3. SULFASALAZINE [Concomitant]
     Active Substance: SULFASALAZINE
     Indication: Spondylitis
     Dosage: 4 COMPRESSE DA 500 MG/DIE?(2 G/DIE)??DA SETTEMBRE 2016:?3 COMPRESSE DA 500 MG/DIE?(1.5 G/DIE)??COMPR
     Route: 048
     Dates: start: 20150714, end: 20180110
  4. SULFASALAZINE [Concomitant]
     Active Substance: SULFASALAZINE
     Indication: Psoriatic arthropathy
  5. ETORICOXIB [Concomitant]
     Active Substance: ETORICOXIB
     Indication: Spondylitis
     Dosage: 1 CPR DA 90 MG LA SERA?COMPRESSE RIVESTITE
     Route: 048
     Dates: start: 2015, end: 201604
  6. ETORICOXIB [Concomitant]
     Active Substance: ETORICOXIB
     Indication: Psoriatic arthropathy

REACTIONS (6)
  - Multiple sclerosis [Recovered/Resolved]
  - Meniere^s disease [Recovered/Resolved]
  - Tremor [Recovered/Resolved]
  - Tremor [Recovered/Resolved]
  - Paraesthesia [Recovered/Resolved]
  - Fibromyalgia [Recovered/Resolved]

NARRATIVE: CASE EVENT DATE: 20160101
